FAERS Safety Report 13126910 (Version 1)
Quarter: 2017Q1

REPORT INFORMATION
  Report Type: Spontaneous
  Country: US (occurrence: US)
  Receive Date: 20170118
  Receipt Date: 20170118
  Transmission Date: 20170428
  Serious: No
  Sender: FDA-Public Use
  Company Number: US-ROCHE-1797770

PATIENT
  Sex: Female

DRUGS (3)
  1. RITUXAN [Suspect]
     Active Substance: RITUXIMAB
     Indication: SJOGREN^S SYNDROME
     Route: 042
  2. SYNTHROID [Concomitant]
     Active Substance: LEVOTHYROXINE SODIUM
     Indication: HASHIMOTO^S ENCEPHALOPATHY
  3. GABAPENTIN. [Concomitant]
     Active Substance: GABAPENTIN
     Indication: PAIN

REACTIONS (6)
  - Lymphadenopathy [Unknown]
  - Injection site reaction [Unknown]
  - Pain [Recovering/Resolving]
  - Headache [Not Recovered/Not Resolved]
  - Vein discolouration [Not Recovered/Not Resolved]
  - Urinary tract infection [Unknown]
